FAERS Safety Report 10428810 (Version 1)
Quarter: 2014Q3

REPORT INFORMATION
  Report Type: Other
  Country: US (occurrence: US)
  Receive Date: 20140904
  Receipt Date: 20140904
  Transmission Date: 20150326
  Serious: Yes (Hospitalization)
  Sender: FDA-Public Use
  Company Number: US-MICRO LABS LIMITED-ML2014-00695

PATIENT
  Age: 76 Year
  Sex: Female

DRUGS (1)
  1. SIMVASTATIN. [Suspect]
     Active Substance: SIMVASTATIN
     Indication: PRODUCT USED FOR UNKNOWN INDICATION
     Dosage: 80 MG/DAY
     Route: 065

REACTIONS (3)
  - Autoimmune hepatitis [Recovering/Resolving]
  - Rhabdomyolysis [Recovered/Resolved]
  - Antiphospholipid antibodies positive [Recovering/Resolving]
